FAERS Safety Report 4396420-4 (Version None)
Quarter: 2004Q3

REPORT INFORMATION
  Report Type: 
  Country: None (occurrence: None)
  Receive Date: 20040709
  Receipt Date: 20040702
  Transmission Date: 20050211
  Serious: Yes (Other)
  Sender: FDA-Public Use
  Company Number: GBWYE0874702JUL04

PATIENT
  Age: 43 Year
  Sex: Female

DRUGS (3)
  1. EFFEXOR [Suspect]
     Dosage: SEE IMAGE
     Dates: start: 20030424, end: 20031217
  2. EFFEXOR [Suspect]
     Dosage: SEE IMAGE
     Dates: start: 20031218, end: 20040301
  3. EFFEXOR [Suspect]
     Dosage: SEE IMAGE
     Dates: start: 20040301, end: 20040426

REACTIONS (4)
  - BALANCE DISORDER [None]
  - DIZZINESS [None]
  - DRUG WITHDRAWAL SYNDROME [None]
  - PARAESTHESIA [None]
